FAERS Safety Report 5161953-X (Version None)
Quarter: 2006Q4

REPORT INFORMATION
  Report Type: 
  Country: None (occurrence: None)
  Receive Date: 20061130
  Receipt Date: 20061114
  Transmission Date: 20070319
  Serious: Yes (Death, Other)
  Sender: FDA-Public Use
  Company Number: DE-ELI_LILLY_AND_COMPANY-DE200611003308

PATIENT
  Sex: Male

DRUGS (5)
  1. ALIMTA [Suspect]
     Indication: PLEURAL MESOTHELIOMA
     Dosage: 500 MG/M2, UNK
     Route: 042
  2. FOLIC ACID [Concomitant]
  3. VITAMIN B-12 [Concomitant]
  4. DEXMETHSONE [Concomitant]
  5. BETA BLOCKING AGENTS [Concomitant]

REACTIONS (3)
  - PANCYTOPENIA [None]
  - SEPSIS [None]
  - SUBILEUS [None]
